FAERS Safety Report 11763728 (Version 1)
Quarter: 2015Q4

REPORT INFORMATION
  Report Type: Spontaneous
  Country: US (occurrence: US)
  Receive Date: 20151120
  Receipt Date: 20151120
  Transmission Date: 20160304
  Serious: No
  Sender: FDA-Public Use
  Company Number: US-ELI_LILLY_AND_COMPANY-US201304005055

PATIENT
  Sex: Female

DRUGS (1)
  1. FORTEO [Suspect]
     Active Substance: TERIPARATIDE
     Dosage: UNK, QD
     Dates: start: 20121101

REACTIONS (5)
  - Asthenia [Unknown]
  - Pruritus genital [Unknown]
  - Fungal infection [Unknown]
  - Nausea [Unknown]
  - Blood pH abnormal [Unknown]
